FAERS Safety Report 5047476-7 (Version None)
Quarter: 2006Q3

REPORT INFORMATION
  Report Type: 
  Country: None (occurrence: None)
  Receive Date: 20060703
  Receipt Date: 20060621
  Transmission Date: 20061208
  Serious: Yes (Hospitalization)
  Sender: FDA-Public Use
  Company Number: 2006BI007266

PATIENT
  Age: 72 Year
  Sex: Female

DRUGS (6)
  1. AVONEX [Suspect]
     Indication: MULTIPLE SCLEROSIS
     Dosage: 30 UG; QW; IM
     Route: 030
     Dates: start: 20010501
  2. ACTONEL [Concomitant]
  3. LEVOTHYROXINE SODIUM [Concomitant]
  4. AMBIEN [Concomitant]
  5. NEURONTIN [Concomitant]
  6. HERBAL SUPPLEMENTS [Concomitant]

REACTIONS (4)
  - ABSCESS [None]
  - CELLULITIS [None]
  - MYOSITIS [None]
  - STREPTOCOCCAL INFECTION [None]
